FAERS Safety Report 9458187 (Version 2)
Quarter: 2013Q3

REPORT INFORMATION
  Report Type: Spontaneous
  Country: CH (occurrence: CH)
  Receive Date: 20130814
  Receipt Date: 20130820
  Transmission Date: 20140515
  Serious: Yes (Other)
  Sender: FDA-Public Use
  Company Number: CH-ELI_LILLY_AND_COMPANY-CH201308001642

PATIENT
  Age: 32 Year
  Sex: Female
  Weight: 65 kg

DRUGS (7)
  1. CYMBALTA [Suspect]
     Indication: DEPRESSION
     Dosage: 60 MG, QD
     Route: 048
     Dates: start: 20130319, end: 20130402
  2. CYMBALTA [Suspect]
     Indication: FATIGUE
     Dosage: 120 MG, QD
     Route: 048
     Dates: start: 20130403, end: 20130529
  3. CYMBALTA [Suspect]
     Dosage: 180 MG, QD
     Route: 048
     Dates: start: 20130530, end: 20130712
  4. CYMBALTA [Suspect]
     Dosage: 120 MG, QD
     Route: 048
     Dates: start: 20130713, end: 20130722
  5. CYMBALTA [Suspect]
     Dosage: 60 MG, QD
     Route: 048
     Dates: start: 20130723, end: 20130730
  6. CYMBALTA [Suspect]
     Dosage: 30 MG, QD
     Route: 048
     Dates: start: 20130805, end: 20130806
  7. CYMBALTA [Suspect]
     Dosage: 60 MG, QD
     Route: 048
     Dates: start: 20130807

REACTIONS (9)
  - Hyperventilation [Recovered/Resolved]
  - Photophobia [Recovered/Resolved]
  - Syncope [Recovered/Resolved]
  - Nausea [Recovered/Resolved]
  - Dizziness [Recovered/Resolved]
  - Hyperhidrosis [Recovered/Resolved]
  - Drug level below therapeutic [Recovered/Resolved]
  - Prescribed overdose [Recovered/Resolved]
  - Drug withdrawal syndrome [Recovered/Resolved]
